FAERS Safety Report 8793021 (Version 2)
Quarter: 2015Q2

REPORT INFORMATION
  Report Type: Report from Study
  Country: US (occurrence: US)
  Receive Date: 20120917
  Receipt Date: 20150617
  Transmission Date: 20150821
  Serious: Yes (Death)
  Sender: FDA-Public Use
  Company Number: US-ROCHE-1125973

PATIENT
  Age: 45 Year
  Sex: Female

DRUGS (17)
  1. BENADRYL [Concomitant]
     Active Substance: DIPHENHYDRAMINE HYDROCHLORIDE
     Route: 040
  2. NEULASTA [Concomitant]
     Active Substance: PEGFILGRASTIM
     Route: 058
  3. ANZEMET [Concomitant]
     Active Substance: DOLASETRON MESYLATE
     Route: 058
  4. ZOMETA [Concomitant]
     Active Substance: ZOLEDRONIC ACID
     Route: 042
  5. AVASTIN [Suspect]
     Active Substance: BEVACIZUMAB
     Indication: MALIGNANT RESPIRATORY TRACT NEOPLASM
     Route: 040
     Dates: start: 20050513
  6. TAXOL [Concomitant]
     Active Substance: PACLITAXEL
     Route: 040
  7. ARANESP [Concomitant]
     Active Substance: DARBEPOETIN ALFA
     Route: 058
  8. CIMETIDINE [Concomitant]
     Active Substance: CIMETIDINE
     Route: 042
  9. TAXOL [Concomitant]
     Active Substance: PACLITAXEL
     Route: 040
  10. CARBOPLATIN. [Concomitant]
     Active Substance: CARBOPLATIN
     Route: 040
  11. ARANESP [Concomitant]
     Active Substance: DARBEPOETIN ALFA
     Route: 058
  12. TAGAMET [Concomitant]
     Active Substance: CIMETIDINE
  13. DECADRON [Concomitant]
     Active Substance: DEXAMETHASONE
     Route: 040
  14. AREDIA [Concomitant]
     Active Substance: PAMIDRONATE DISODIUM
     Route: 042
  15. NEUPOGEN [Concomitant]
     Active Substance: FILGRASTIM
     Route: 058
  16. KYTRIL [Concomitant]
     Active Substance: GRANISETRON HYDROCHLORIDE
     Route: 040
  17. EMEND [Concomitant]
     Active Substance: APREPITANT
     Route: 040

REACTIONS (2)
  - Death [Fatal]
  - Off label use [Unknown]

NARRATIVE: CASE EVENT DATE: 200510
